FAERS Safety Report 6839998-0 (Version None)
Quarter: 2010Q3

REPORT INFORMATION
  Report Type: 
  Country: None (occurrence: None)
  Receive Date: 20100709
  Receipt Date: 20100628
  Transmission Date: 20110219
  Serious: Yes (Other)
  Sender: FDA-Public Use
  Company Number: 7009536

PATIENT
  Age: 27 Year

DRUGS (3)
  1. REBIF [Suspect]
     Indication: PRODUCT USED FOR UNKNOWN INDICATION
     Dosage: 44 MCG, 3 IN 1 WK, SUBCUTANEOUS
     Route: 058
     Dates: start: 20081026, end: 20100401
  2. KEPPRA [Suspect]
     Indication: CONVULSION
     Dates: start: 20091001
  3. BACLOFEN [Concomitant]

REACTIONS (3)
  - CONVULSION [None]
  - ORAL INFECTION [None]
  - TOOTH INFECTION [None]
